FAERS Safety Report 17109770 (Version 2)
Quarter: 2019Q4

REPORT INFORMATION
  Report Type: Spontaneous
  Country: US (occurrence: US)
  Receive Date: 20191204
  Receipt Date: 20191211
  Transmission Date: 20200122
  Serious: Yes (Other)
  Sender: FDA-Public Use
  Company Number: US-AUROBINDO-AUR-APL-2019-075352

PATIENT
  Age: 20 Year
  Sex: Female

DRUGS (1)
  1. OXYCODONE TABLET [Suspect]
     Active Substance: OXYCODONE
     Indication: PAIN
     Dosage: UNK
     Route: 065

REACTIONS (7)
  - Therapeutic response shortened [Unknown]
  - Drug ineffective [Unknown]
  - Immobile [Unknown]
  - Feeling abnormal [Unknown]
  - Extra dose administered [Unknown]
  - Emotional distress [Unknown]
  - Wrong technique in product usage process [Unknown]
